FAERS Safety Report 7132001-7 (Version None)
Quarter: 2010Q4

REPORT INFORMATION
  Report Type: 
  Country: None (occurrence: None)
  Receive Date: 20101129
  Receipt Date: 20101129
  Transmission Date: 20110411
  Serious: No
  Sender: FDA-Public Use
  Company Number: None

PATIENT
  Sex: Female
  Weight: 69.8539 kg

DRUGS (2)
  1. AMBIEN [Suspect]
     Indication: ANXIETY
     Dosage: 10 MGM AT BEDTIME BY MOUTH
     Route: 048
     Dates: start: 20100801, end: 20100911
  2. AMBIEN [Suspect]
     Indication: INSOMNIA
     Dosage: 10 MGM AT BEDTIME BY MOUTH
     Route: 048
     Dates: start: 20100801, end: 20100911

REACTIONS (4)
  - ANXIETY [None]
  - DEPRESSION [None]
  - FEAR [None]
  - MEMORY IMPAIRMENT [None]
